FAERS Safety Report 15771447 (Version 1)
Quarter: 2018Q4

REPORT INFORMATION
  Report Type: Spontaneous
  Country: US (occurrence: US)
  Receive Date: 20181228
  Receipt Date: 20181228
  Transmission Date: 20190205
  Serious: No
  Sender: FDA-Public Use
  Company Number: US-INDIVIOR LIMITED-INDV-115556-2018

PATIENT
  Age: 59 Year
  Sex: Female

DRUGS (2)
  1. BUPRENORPHINE/NALOXONE 8 MG FILM [Suspect]
     Active Substance: BUPRENORPHINE\NALOXONE
     Indication: DRUG USE DISORDER
     Dosage: 8MG, UNK
     Route: 065
  2. SUBLOCADE [Suspect]
     Active Substance: BUPRENORPHINE
     Indication: DRUG USE DISORDER
     Dosage: 300 MG, QMO (1ST INJECTION)
     Route: 058
     Dates: start: 20181026

REACTIONS (4)
  - Injection site erythema [Unknown]
  - Injection site bruising [Unknown]
  - Chills [Unknown]
  - Injection site pain [Unknown]

NARRATIVE: CASE EVENT DATE: 2018
